FAERS Safety Report 8675639 (Version 2)
Quarter: 2012Q4

REPORT INFORMATION
  Report Type: 
  Country: SE (occurrence: SE)
  Receive Date: 20120720
  Receipt Date: 20120828
  Transmission Date: 20130627
  Serious: Yes (Hospitalization)
  Sender: FDA-Public Use
  Company Number: SE-009507513-1207SWE001759

PATIENT

DRUGS (4)
  1. ASMANEX TWISTHALER [Suspect]
     Dosage: 200 Microgram, bid
  2. FORMOTEROL [Concomitant]
     Dosage: UNK, bid
  3. LEVOTHYROXINE SODIUM [Concomitant]
     Dosage: UNK, qd
  4. HYDROXOCOBALAMIN ACETATE [Concomitant]
     Dosage: UNK, qd

REACTIONS (4)
  - Pneumonia [Recovering/Resolving]
  - Underdose [Unknown]
  - Drug dose omission [None]
  - Product container issue [None]
